FAERS Safety Report 16816246 (Version 2)
Quarter: 2019Q4

REPORT INFORMATION
  Report Type: Spontaneous
  Country: JP (occurrence: JP)
  Receive Date: 20190917
  Receipt Date: 20191015
  Transmission Date: 20200122
  Serious: Yes (Other)
  Sender: FDA-Public Use
  Company Number: PHHY2019JP215382

PATIENT
  Age: 73 Year
  Sex: Female

DRUGS (4)
  1. NOVASTAN [Suspect]
     Active Substance: ARGATROBAN
     Indication: HEPARIN-INDUCED THROMBOCYTOPENIA
     Dosage: 0.25 MG/KG, QD
     Route: 065
  2. NOVASTAN [Suspect]
     Active Substance: ARGATROBAN
     Dosage: 7-15?G/KM/MIN
     Route: 065
  3. NAFAMOSTAT MESILATE [Suspect]
     Active Substance: NAFAMOSTAT MESYLATE
     Indication: ATRIAL SEPTAL DEFECT REPAIR
     Dosage: UNK
     Route: 065
  4. NOVASTAN [Suspect]
     Active Substance: ARGATROBAN
     Indication: ATRIAL SEPTAL DEFECT REPAIR
     Dosage: 10 MG, UNK
     Route: 065

REACTIONS (3)
  - Cerebral infarction [Unknown]
  - Bleeding time prolonged [Recovered/Resolved]
  - Coagulation time prolonged [Unknown]
